FAERS Safety Report 4864425-2 (Version None)
Quarter: 2005Q4

REPORT INFORMATION
  Report Type: 
  Country: None (occurrence: None)
  Receive Date: 20051221
  Receipt Date: 20051221
  Transmission Date: 20060501
  Serious: No
  Sender: FDA-Public Use
  Company Number: None

PATIENT
  Sex: Male

DRUGS (1)
  1. XYREM [Suspect]
     Dosage: 3 GRAMS  HS AND REPEAT PO
     Route: 048

REACTIONS (2)
  - ANGER [None]
  - MOOD ALTERED [None]
